FAERS Safety Report 14227769 (Version 1)
Quarter: 2017Q4

REPORT INFORMATION
  Report Type: Spontaneous
  Country: RU (occurrence: RU)
  Receive Date: 20171127
  Receipt Date: 20171127
  Transmission Date: 20180321
  Serious: Yes (Other)
  Sender: FDA-Public Use
  Company Number: RU-TEVA-2017-RU-826161

PATIENT
  Age: 27 Year
  Sex: Male

DRUGS (7)
  1. BLEOMYCIN [Suspect]
     Active Substance: BLEOMYCIN SULFATE
     Indication: HODGKIN^S DISEASE
     Dosage: ESCALATED BEACOPP REGIMEN
     Route: 065
     Dates: start: 201609
  2. CYCLOPHOSPHAMIDE. [Suspect]
     Active Substance: CYCLOPHOSPHAMIDE
     Indication: HODGKIN^S DISEASE
     Dosage: ESCALATED BEACOPP REGIMEN
     Route: 065
     Dates: start: 201609
  3. ETOPOSIDE. [Suspect]
     Active Substance: ETOPOSIDE
     Indication: HODGKIN^S DISEASE
     Dosage: ESCALATED BEACOPP REGIMEN
     Route: 065
     Dates: start: 201609
  4. VINCRISTINE [Suspect]
     Active Substance: VINCRISTINE
     Indication: HODGKIN^S DISEASE
     Dosage: ESCALATED BEACOPP REGIMEN
     Route: 065
     Dates: start: 201609
  5. PREDNISONE. [Suspect]
     Active Substance: PREDNISONE
     Indication: HODGKIN^S DISEASE
     Dosage: ESCALATED BEACOPP REGIMEN
     Route: 065
     Dates: start: 201609
  6. PROCARBAZINE [Suspect]
     Active Substance: PROCARBAZINE
     Indication: HODGKIN^S DISEASE
     Dosage: ESCALATED BEACOPP REGIMEN
     Route: 065
     Dates: start: 201609
  7. DOXORUBICIN [Suspect]
     Active Substance: DOXORUBICIN
     Indication: HODGKIN^S DISEASE
     Dosage: ESCALATED BEACOPP REGIMEN
     Route: 065
     Dates: start: 201609

REACTIONS (4)
  - Bronchopulmonary aspergillosis [Recovering/Resolving]
  - Respiratory failure [Recovering/Resolving]
  - Pneumocystis jirovecii pneumonia [Recovering/Resolving]
  - Pancytopenia [Unknown]
